FAERS Safety Report 4781707-3 (Version None)
Quarter: 2005Q3

REPORT INFORMATION
  Report Type: 
  Country: None (occurrence: None)
  Receive Date: 20050927
  Receipt Date: 20050913
  Transmission Date: 20060218
  Serious: No
  Sender: FDA-Public Use
  Company Number: 2005AP000707

PATIENT
  Sex: Female

DRUGS (1)
  1. DILT-XR [Suspect]
     Dosage: PO
     Route: 048

REACTIONS (5)
  - ACIDOSIS [None]
  - DIARRHOEA [None]
  - NAUSEA [None]
  - POSTOPERATIVE INFECTION [None]
  - RENAL FAILURE [None]
